FAERS Safety Report 8469458-5 (Version None)
Quarter: 2012Q2

REPORT INFORMATION
  Report Type: 
  Country: None (occurrence: None)
  Receive Date: 20120626
  Receipt Date: 20120618
  Transmission Date: 20120825
  Serious: Yes (Hospitalization)
  Sender: FDA-Public Use
  Company Number: US-BAXTER-2012BAX007911

PATIENT
  Sex: Male
  Weight: 83 kg

DRUGS (8)
  1. RILUTEK [Suspect]
     Route: 048
     Dates: start: 20100101, end: 20120607
  2. SODIUM CHLORIDE [Concomitant]
     Route: 042
     Dates: start: 20120202, end: 20120607
  3. GAMMAGARD LIQUID [Suspect]
     Indication: CHRONIC INFLAMMATORY DEMYELINATING POLYRADICULONEUROPATHY
     Route: 042
     Dates: start: 20111010, end: 20120523
  4. DIPHENHYDRAMINE HCL [Concomitant]
     Indication: PREMEDICATION
     Route: 048
     Dates: start: 20120202, end: 20120607
  5. LORATADINE [Concomitant]
     Route: 048
     Dates: start: 20120202, end: 20120607
  6. GAMMAGARD LIQUID [Suspect]
     Route: 042
     Dates: start: 20120202, end: 20120607
  7. MULTI-VITAMIN [Concomitant]
     Route: 048
     Dates: start: 20111007, end: 20120607
  8. MAPAP [Concomitant]
     Indication: PREMEDICATION
     Route: 048
     Dates: start: 20120202, end: 20120607

REACTIONS (1)
  - DEEP VEIN THROMBOSIS [None]
